FAERS Safety Report 13741239 (Version 1)
Quarter: 2017Q3

REPORT INFORMATION
  Report Type: Spontaneous
  Country: US (occurrence: US)
  Receive Date: 20170711
  Receipt Date: 20170711
  Transmission Date: 20171127
  Serious: Yes (Death)
  Sender: FDA-Public Use
  Company Number: None

PATIENT
  Age: 53 Year
  Sex: Male
  Weight: 67.5 kg

DRUGS (1)
  1. DIAZAPAM 10 MG GEL [Suspect]
     Active Substance: DIAZEPAM
     Indication: MUSCLE SPASMS
     Dosage: ?          OTHER STRENGTH:GM;?
     Route: 048
     Dates: start: 19950601, end: 20130103

REACTIONS (3)
  - Completed suicide [None]
  - Therapy cessation [None]
  - Withdrawal syndrome [None]

NARRATIVE: CASE EVENT DATE: 20130111
